FAERS Safety Report 6315584-6 (Version None)
Quarter: 2009Q3

REPORT INFORMATION
  Report Type: 
  Country: None (occurrence: None)
  Receive Date: 20090818
  Receipt Date: 20090818
  Transmission Date: 20100115
  Serious: Yes (Hospitalization, Other)
  Sender: FDA-Public Use
  Company Number: AUR-APL-2009-00172

PATIENT
  Age: 72 Year
  Sex: Female

DRUGS (8)
  1. FLUOXETINE [Suspect]
  2. WARFARIN SODIUM [Suspect]
     Indication: PROPHYLAXIS
     Dates: end: 20030901
  3. LANSOPRAZOLE [Suspect]
  4. TOTAL PARENTAL NUTRITION [Suspect]
     Indication: SHORT-BOWEL SYNDROME
  5. LEVOTHYROXINE SODIUM [Concomitant]
  6. CODEINE [Concomitant]
  7. LOPERAMIDE [Concomitant]
  8. TEMAZEPAM [Concomitant]

REACTIONS (10)
  - CATHETER SEPSIS [None]
  - CONDITION AGGRAVATED [None]
  - FEEDING DISORDER [None]
  - GENERAL PHYSICAL HEALTH DETERIORATION [None]
  - HEPATIC STEATOSIS [None]
  - HEPATITIS CHOLESTATIC [None]
  - HEPATOTOXICITY [None]
  - HYPOTHYROIDISM [None]
  - INTESTINAL ISCHAEMIA [None]
  - MESENTERIC ARTERY THROMBOSIS [None]
